FAERS Safety Report 13060707 (Version 2)
Quarter: 2017Q1

REPORT INFORMATION
  Report Type: Spontaneous
  Country: US (occurrence: US)
  Receive Date: 20161225
  Receipt Date: 20170206
  Transmission Date: 20170428
  Serious: No
  Sender: FDA-Public Use
  Company Number: US-ASTRAZENECA-2016SF30881

PATIENT
  Age: 20649 Day
  Sex: Female
  Weight: 99.8 kg

DRUGS (2)
  1. SYMBICORT [Suspect]
     Active Substance: BUDESONIDE\FORMOTEROL FUMARATE DIHYDRATE
     Indication: ASTHMA
     Dosage: 160/4.5 MICROGRAMS TWO TIMES A DAY
     Route: 055
     Dates: start: 2013
  2. VENTOLIN HFA ALBUTEROL SULFATE [Concomitant]
     Indication: ASTHMA
     Dosage: TWO TIMES A DAY
     Dates: start: 2013

REACTIONS (5)
  - Off label use [Unknown]
  - Device issue [Recovered/Resolved]
  - Intentional product misuse [Unknown]
  - Product packaging quantity issue [Unknown]
  - Speech disorder [Recovering/Resolving]

NARRATIVE: CASE EVENT DATE: 20161205
